FAERS Safety Report 8562585-3 (Version None)
Quarter: 2012Q3

REPORT INFORMATION
  Report Type: 
  Country: None (occurrence: None)
  Receive Date: 20120802
  Receipt Date: 20101215
  Transmission Date: 20120928
  Serious: Yes (Hospitalization, Other)
  Sender: FDA-Public Use
  Company Number: US-BAYER-200939451NA

PATIENT
  Sex: Female
  Weight: 75 kg

DRUGS (3)
  1. COUMADIN [Concomitant]
     Route: 065
  2. YASMIN [Suspect]
     Dosage: UNK
     Route: 048
     Dates: start: 20070101
  3. YAZ [Suspect]
     Dosage: UNK
     Dates: start: 20070101

REACTIONS (2)
  - SMALL INTESTINAL HAEMORRHAGE [None]
  - INTESTINAL INFARCTION [None]
